FAERS Safety Report 21668210 (Version 1)
Quarter: 2022Q4

REPORT INFORMATION
  Report Type: Spontaneous
  Country: US (occurrence: None)
  Receive Date: 20221130
  Receipt Date: 20221130
  Transmission Date: 20230113
  Serious: Yes (Hospitalization)
  Sender: FDA-Public Use
  Company Number: None

PATIENT
  Age: 77 Year
  Sex: Female
  Weight: 59.87 kg

DRUGS (12)
  1. VERZENIO [Suspect]
     Active Substance: ABEMACICLIB
     Indication: Breast cancer female
     Dosage: FREQUENCY : TWICE A DAY;?
     Route: 048
     Dates: start: 202211
  2. ANASTROZOLE [Concomitant]
  3. CALCIUM CARBONATE [Concomitant]
  4. CANDESARTAN [Concomitant]
  5. ESCITALOPRAM [Concomitant]
  6. LIDOCAINE [Concomitant]
  7. MEGESTROL [Concomitant]
  8. METOPROLOL [Concomitant]
  9. NORCO [Concomitant]
  10. SENNO [Concomitant]
  11. VERZENIO [Concomitant]
  12. VITAMIN D3 [Concomitant]

REACTIONS (3)
  - Asthenia [None]
  - Decreased appetite [None]
  - Dehydration [None]

NARRATIVE: CASE EVENT DATE: 20221128
